FAERS Safety Report 9312744 (Version 1)
Quarter: 2013Q2

REPORT INFORMATION
  Report Type: Spontaneous
  Country: US (occurrence: US)
  Receive Date: 20130528
  Receipt Date: 20130528
  Transmission Date: 20140414
  Serious: Yes (Other)
  Sender: FDA-Public Use
  Company Number: US-PFIZER INC-2013158710

PATIENT
  Sex: Male

DRUGS (2)
  1. CELEBREX [Suspect]
     Indication: PROCEDURAL PAIN
     Dosage: UNK
  2. CELEBREX [Suspect]
     Indication: PROCEDURAL PAIN
     Dosage: UNK
     Dates: start: 20130520

REACTIONS (3)
  - Rectal haemorrhage [Recovered/Resolved]
  - Drug effect incomplete [Unknown]
  - Pain [Unknown]
